FAERS Safety Report 7219352-2 (Version None)
Quarter: 2011Q1

REPORT INFORMATION
  Report Type: 
  Country: None (occurrence: None)
  Receive Date: 20110111
  Receipt Date: 20110106
  Transmission Date: 20110831
  Serious: No
  Sender: FDA-Public Use
  Company Number: US-PFIZER INC-2011004336

PATIENT
  Sex: Female

DRUGS (2)
  1. CALAN [Suspect]
     Dosage: UNK
  2. VERAPAMIL HYDROCHLORIDE [Suspect]
     Dosage: UNK

REACTIONS (2)
  - FOOD INTERACTION [None]
  - FLUSHING [None]
